FAERS Safety Report 24075514 (Version 1)
Quarter: 2024Q3

REPORT INFORMATION
  Report Type: Spontaneous
  Country: GB (occurrence: GB)
  Receive Date: 20240710
  Receipt Date: 20240710
  Transmission Date: 20241017
  Serious: Yes (Other)
  Sender: TEVA
  Company Number: GB-MHRA-EMIS-3831-f1ebf208-ad70-49fe-9e22-72ebf57f5e83

PATIENT
  Age: 65 Year
  Sex: Female
  Weight: 88 kg

DRUGS (4)
  1. ATORVASTATIN [Suspect]
     Active Substance: ATORVASTATIN
     Route: 065
     Dates: start: 20240529, end: 20240624
  2. EZETIMIBE [Concomitant]
     Active Substance: EZETIMIBE
     Dates: start: 20240624
  3. CROTAMITON [Concomitant]
     Active Substance: CROTAMITON
     Dosage: 100G. APPLY TWO OR THREE TIMES DAILY (FOR ITCH)
     Dates: start: 20240529
  4. BETAMETHASONE [Concomitant]
     Active Substance: BETAMETHASONE\BETAMETHASONE DIPROPIONATE
     Dosage: 100G. APPLY THINLY TWICE A DAY FOR 1 WEEK
     Dates: start: 20240529

REACTIONS (2)
  - Chromaturia [Recovered/Resolved]
  - Dysuria [Recovered/Resolved]
